FAERS Safety Report 6898041-8 (Version None)
Quarter: 2010Q3

REPORT INFORMATION
  Report Type: 
  Country: None (occurrence: None)
  Receive Date: 20100802
  Receipt Date: 20070824
  Transmission Date: 20110219
  Serious: No
  Sender: FDA-Public Use
  Company Number: US-PFIZER INC-2007071435

PATIENT
  Age: 22 Year
  Sex: Female

DRUGS (3)
  1. LYRICA [Suspect]
     Indication: FIBROMYALGIA
     Dates: start: 20060412, end: 20060703
  2. ULTRAM [Suspect]
     Dates: end: 20060703
  3. ADVIL LIQUI-GELS [Suspect]

REACTIONS (1)
  - ABDOMINAL DISCOMFORT [None]
